FAERS Safety Report 10056593 (Version 1)
Quarter: 2014Q2

REPORT INFORMATION
  Report Type: Spontaneous
  Country: US (occurrence: US)
  Receive Date: 20140403
  Receipt Date: 20140403
  Transmission Date: 20141212
  Serious: Yes (Hospitalization)
  Sender: FDA-Public Use
  Company Number: US-BAYER-2014-046466

PATIENT
  Age: 68 Year
  Sex: Male

DRUGS (1)
  1. GADAVIST [Suspect]
     Indication: NUCLEAR MAGNETIC RESONANCE IMAGING SPINAL
     Dosage: 10 ML, ONCE
     Dates: start: 20140325, end: 20140325

REACTIONS (5)
  - Convulsion [None]
  - Feeling hot [None]
  - Skin tightness [None]
  - Rash [Not Recovered/Not Resolved]
  - Swelling face [None]
